FAERS Safety Report 9415081 (Version 1)
Quarter: 2013Q3

REPORT INFORMATION
  Report Type: Report from Study
  Country: US (occurrence: US)
  Receive Date: 20130723
  Receipt Date: 20130723
  Transmission Date: 20140515
  Serious: Yes (Other)
  Sender: FDA-Public Use
  Company Number: US-ROCHE-1251465

PATIENT
  Age: 61 Year
  Sex: Male

DRUGS (5)
  1. CAPECITABINE [Suspect]
     Indication: GASTRIC CANCER STAGE IV
     Route: 048
  2. 5-FLUOROURACIL [Suspect]
     Indication: GASTRIC CANCER STAGE IV
     Route: 065
  3. EPIRUBICIN [Concomitant]
     Indication: GASTRIC CANCER STAGE IV
     Route: 065
  4. CISPLATIN [Concomitant]
     Indication: GASTRIC CANCER STAGE IV
     Route: 065
  5. LEUCOVORIN [Concomitant]

REACTIONS (1)
  - Cardiotoxicity [Recovered/Resolved]
